FAERS Safety Report 9820407 (Version 2)
Quarter: 2014Q1

REPORT INFORMATION
  Report Type: Spontaneous
  Country: GB (occurrence: GB)
  Receive Date: 20140116
  Receipt Date: 20140116
  Transmission Date: 20141002
  Serious: Yes (Other)
  Sender: FDA-Public Use
  Company Number: GB-TEVA-277567ISR

PATIENT
  Age: 79 Year
  Sex: Male

DRUGS (5)
  1. MESALAZINE [Suspect]
  2. PREDNISOLONE [Suspect]
  3. AZATHIOPRINE [Suspect]
  4. MERCAPTAMINE [Suspect]
  5. SULFASALAZINE [Suspect]

REACTIONS (2)
  - Fall [Unknown]
  - Laceration [Unknown]
